FAERS Safety Report 9822192 (Version 1)
Quarter: 2014Q1

REPORT INFORMATION
  Report Type: Spontaneous
  Country: IN (occurrence: None)
  Receive Date: 20140115
  Receipt Date: 20140115
  Transmission Date: 20141002
  Serious: Yes (Hospitalization)
  Sender: FDA-Public Use
  Company Number: MAC2014000828

PATIENT
  Age: 65 Year
  Sex: Female

DRUGS (8)
  1. ESCITALOPRAM OXALATE [Suspect]
     Indication: DEPRESSION
  2. LINEZOLID [Suspect]
     Route: 042
  3. CLONAZEPAM [Concomitant]
  4. ETOPHYLLINE (ETOPHYLLINE) [Concomitant]
  5. GUAIPHENESIN (GUAIPHENESIN) [Concomitant]
  6. AMBROXOL [Concomitant]
  7. AMOXICILLIN (AMOXICILLIN) [Concomitant]
  8. CLAVULANATE (CLAVULANATE) [Concomitant]

REACTIONS (7)
  - Serotonin syndrome [None]
  - Hypoxia [None]
  - Hyperhidrosis [None]
  - Drug interaction [None]
  - Pneumonitis [None]
  - Confusional state [None]
  - Myoclonus [None]
